FAERS Safety Report 25837820 (Version 1)
Quarter: 2025Q3

REPORT INFORMATION
  Report Type: Spontaneous
  Country: US (occurrence: US)
  Receive Date: 20250923
  Receipt Date: 20250923
  Transmission Date: 20251020
  Serious: No
  Sender: USAntibiotics
  Company Number: US-USAN-USUSAN2025SPO000005

PATIENT
  Age: 58 Year
  Sex: Female

DRUGS (1)
  1. AUGMENTIN [Suspect]
     Active Substance: AMOXICILLIN\CLAVULANATE POTASSIUM

REACTIONS (2)
  - Dyspepsia [Unknown]
  - Nausea [Unknown]
